FAERS Safety Report 7297877-1 (Version None)
Quarter: 2011Q1

REPORT INFORMATION
  Report Type: 
  Country: None (occurrence: None)
  Receive Date: 20110217
  Receipt Date: 20110214
  Transmission Date: 20110831
  Serious: Yes (Other)
  Sender: FDA-Public Use
  Company Number: US-JNJFOC-20110204275

PATIENT
  Sex: Female
  Weight: 62.6 kg

DRUGS (1)
  1. DURAGESIC-50 [Suspect]
     Indication: BACK PAIN
     Route: 062

REACTIONS (6)
  - WEIGHT INCREASED [None]
  - ADVERSE EVENT [None]
  - HYPERSOMNIA [None]
  - HYPOAESTHESIA [None]
  - APPLICATION SITE IRRITATION [None]
  - OEDEMA PERIPHERAL [None]
